FAERS Safety Report 8042429-9 (Version None)
Quarter: 2012Q1

REPORT INFORMATION
  Report Type: 
  Country: None (occurrence: None)
  Receive Date: 20120112
  Receipt Date: 20120110
  Transmission Date: 20120608
  Serious: Yes (Other)
  Sender: FDA-Public Use
  Company Number: US-PFIZER INC-2012007709

PATIENT
  Sex: Male
  Weight: 66 kg

DRUGS (3)
  1. GENOTROPIN [Suspect]
     Indication: GROWTH HORMONE DEFICIENCY
     Dosage: 2.4 MG, DAILY, 6X/WEEK
     Route: 058
     Dates: end: 20110101
  2. SYNTHROID [Concomitant]
     Indication: HYPOTHYROIDISM
     Dosage: UNK
  3. GENOTROPIN [Suspect]
     Dosage: 2.6 MG, UNK
     Route: 058
     Dates: start: 20110101, end: 20120101

REACTIONS (4)
  - DIZZINESS [None]
  - NAUSEA [None]
  - SINUSITIS [None]
  - HEADACHE [None]
